FAERS Safety Report 7651070-9 (Version None)
Quarter: 2011Q3

REPORT INFORMATION
  Report Type: 
  Country: None (occurrence: None)
  Receive Date: 20110802
  Receipt Date: 20110624
  Transmission Date: 20111222
  Serious: Yes (Other)
  Sender: FDA-Public Use
  Company Number: PHHY2011US57010

PATIENT
  Age: 45 Year
  Sex: Female

DRUGS (5)
  1. PEPCID [Suspect]
     Indication: GASTROOESOPHAGEAL REFLUX DISEASE
     Dosage: 1 DF, QD
  2. TOPAMAX [Concomitant]
     Indication: MIGRAINE
     Dosage: UNK
  3. NEURONTIN [Concomitant]
     Indication: HOT FLUSH
     Dosage: 3 DF, QHS
  4. ZOMETA [Suspect]
     Indication: OSTEOPOROSIS
     Dosage: 4 MG, UNK
  5. PRILOSEC [Suspect]
     Indication: GASTROOESOPHAGEAL REFLUX DISEASE
     Dosage: 1 DF, QD

REACTIONS (16)
  - CONFUSIONAL STATE [None]
  - ANXIETY [None]
  - MYALGIA [None]
  - MUSCLE SPASMS [None]
  - GLOSSODYNIA [None]
  - HEADACHE [None]
  - ERUCTATION [None]
  - AGITATION [None]
  - MUSCLE TWITCHING [None]
  - BIPOLAR DISORDER [None]
  - INSOMNIA [None]
  - PAIN [None]
  - AGGRESSION [None]
  - DISTURBANCE IN ATTENTION [None]
  - AFFECTIVE DISORDER [None]
  - SWOLLEN TONGUE [None]
